FAERS Safety Report 11068555 (Version 2)
Quarter: 2015Q2

REPORT INFORMATION
  Report Type: Spontaneous
  Country: US (occurrence: US)
  Receive Date: 20150427
  Receipt Date: 20150519
  Transmission Date: 20150821
  Serious: No
  Sender: FDA-Public Use
  Company Number: US-PFIZER INC-2015137324

PATIENT
  Age: 57 Year
  Sex: Female

DRUGS (1)
  1. IBRANCE [Suspect]
     Active Substance: PALBOCICLIB
     Indication: BREAST CANCER FEMALE
     Dosage: 125 MG,CYCLIC (ONCE DAILY WITH FOOD FOR 21 DAYS THEN 7 DAYS OFF)
     Route: 048
     Dates: start: 2015, end: 2015

REACTIONS (4)
  - White blood cell count decreased [Unknown]
  - Swelling [Unknown]
  - Pain [Unknown]
  - Thrombosis [Unknown]

NARRATIVE: CASE EVENT DATE: 2015
